FAERS Safety Report 13733833 (Version 3)
Quarter: 2017Q3

REPORT INFORMATION
  Report Type: Spontaneous
  Country: FR (occurrence: FR)
  Receive Date: 20170707
  Receipt Date: 20170915
  Transmission Date: 20171127
  Serious: Yes (Disabling, Other)
  Sender: FDA-Public Use
  Company Number: FR-ALLERGAN-1728536US

PATIENT
  Age: 73 Year
  Sex: Male

DRUGS (7)
  1. SIMVASTATINE [Concomitant]
     Active Substance: SIMVASTATIN
     Indication: DYSLIPIDAEMIA
     Dosage: UNK, UNKNOWN
     Route: 048
  2. RABEPRAZOLE [Concomitant]
     Active Substance: RABEPRAZOLE
     Indication: GASTRIC ULCER
     Dosage: 10 MG, UNKNOWN
     Route: 048
  3. TRIPTORELIN PAMOATE - BP [Suspect]
     Active Substance: TRIPTORELIN PAMOATE
     Dosage: UNK, SINGLE
     Route: 030
     Dates: start: 201612, end: 201612
  4. TOVIAZ [Concomitant]
     Active Substance: FESOTERODINE FUMARATE
     Indication: BENIGN PROSTATIC HYPERPLASIA
     Dosage: 1 DF, UNKNOWN
     Route: 048
     Dates: start: 201612
  5. QUINAPRIL HYDROCHLORIDE. [Concomitant]
     Active Substance: QUINAPRIL HYDROCHLORIDE
     Indication: HYPERTENSION
     Dosage: 1 UNK, UNKNOWN
     Route: 048
  6. TRIPTORELIN PAMOATE - BP [Suspect]
     Active Substance: TRIPTORELIN PAMOATE
     Indication: PROSTATE CANCER
     Dosage: UNK, SINGLE
     Route: 030
     Dates: start: 201703, end: 201703
  7. CASODEX [Suspect]
     Active Substance: BICALUTAMIDE
     Indication: PROSTATE CANCER
     Dosage: 1 DF, UNKNOWN
     Route: 048
     Dates: start: 201612, end: 20170510

REACTIONS (4)
  - Gait disturbance [Recovered/Resolved]
  - Tendon pain [Recovered/Resolved]
  - Movement disorder [Recovered/Resolved]
  - Myalgia [Recovered/Resolved]

NARRATIVE: CASE EVENT DATE: 20170430
